FAERS Safety Report 13085700 (Version 3)
Quarter: 2017Q1

REPORT INFORMATION
  Report Type: Report from Study
  Country: US (occurrence: US)
  Receive Date: 20170104
  Receipt Date: 20170306
  Transmission Date: 20170428
  Serious: Yes (Hospitalization)
  Sender: FDA-Public Use
  Company Number: US-BAYER-2016-245982

PATIENT
  Age: 81 Year
  Sex: Male

DRUGS (3)
  1. XOFIGO [Suspect]
     Active Substance: RADIUM RA-223 DICHLORIDE
     Indication: HORMONE-REFRACTORY PROSTATE CANCER
     Dosage: UNK
     Dates: start: 20161027
  2. XOFIGO [Suspect]
     Active Substance: RADIUM RA-223 DICHLORIDE
     Indication: METASTASES TO BONE
     Dosage: 101.60 UCI ONCE EVERY 28 DAYS
     Route: 042
     Dates: start: 20161122
  3. XOFIGO [Suspect]
     Active Substance: RADIUM RA-223 DICHLORIDE
     Indication: HORMONE-REFRACTORY PROSTATE CANCER
     Dosage: 95.50 UCI
     Dates: start: 20170112

REACTIONS (3)
  - Abasia [None]
  - Malaise [None]
  - Hospitalisation [None]

NARRATIVE: CASE EVENT DATE: 20161227
